FAERS Safety Report 10246250 (Version 1)
Quarter: 2014Q2

REPORT INFORMATION
  Report Type: Spontaneous
  Country: US (occurrence: US)
  Receive Date: 20140619
  Receipt Date: 20140619
  Transmission Date: 20141212
  Serious: Yes (Hospitalization)
  Sender: FDA-Public Use
  Company Number: US-INCYTE CORPORATION-2014IN001646

PATIENT
  Sex: Female

DRUGS (4)
  1. JAKAFI [Suspect]
     Dosage: 10 MG, BID
     Route: 048
     Dates: start: 20140514
  2. MONTELUKAST SODIUM [Concomitant]
  3. OXYBUTYNIN CHLORIDE [Concomitant]
  4. ALPRAZOLAM [Concomitant]

REACTIONS (1)
  - Hospitalisation [Unknown]
